FAERS Safety Report 9867354 (Version 1)
Quarter: 2014Q1

REPORT INFORMATION
  Report Type: Spontaneous
  Country: US (occurrence: US)
  Receive Date: 20140204
  Receipt Date: 20140204
  Transmission Date: 20141002
  Serious: No
  Sender: FDA-Public Use
  Company Number: US-009507513-1402USA000904

PATIENT
  Age: 86 Year
  Sex: Female

DRUGS (1)
  1. AZASITE [Suspect]
     Dosage: ONE DROP IN EACH EYE ONCE A DAY
     Route: 031
     Dates: start: 20140125

REACTIONS (3)
  - Drug dose omission [Unknown]
  - Product quality issue [Unknown]
  - No adverse event [Unknown]
